FAERS Safety Report 5282794-9 (Version None)
Quarter: 2007Q2

REPORT INFORMATION
  Report Type: 
  Country: None (occurrence: None)
  Receive Date: 20070402
  Receipt Date: 20070326
  Transmission Date: 20071010
  Serious: Yes (Congenital Anomaly)
  Sender: FDA-Public Use
  Company Number: GB-ELI_LILLY_AND_COMPANY-GB200702003373

PATIENT

DRUGS (4)
  1. ZYPREXA [Suspect]
     Route: 064
  2. AMOXICILLIN [Concomitant]
     Route: 064
  3. IMIPRAMINE [Concomitant]
     Route: 064
  4. GAVISCON                                /GFR/ [Concomitant]
     Route: 064

REACTIONS (2)
  - DRUG EXPOSURE DURING PREGNANCY [None]
  - MACROSOMIA [None]
